FAERS Safety Report 4423813-9 (Version None)
Quarter: 2004Q3

REPORT INFORMATION
  Report Type: 
  Country: None (occurrence: None)
  Receive Date: 20040714
  Receipt Date: 20040325
  Transmission Date: 20050211
  Serious: Yes (Other)
  Sender: FDA-Public Use
  Company Number: HQWYE239730MAR04

PATIENT
  Age: 67 Year
  Sex: Female
  Weight: 90.8 kg

DRUGS (15)
  1. ALAVERT [Suspect]
     Indication: HYPERSENSITIVITY
     Dosage: 1 TABLET 1X PER 1 DAY, ORAL
     Route: 048
     Dates: start: 20040301
  2. BENADRYL (DIPHENYDRAMINE HYDROCHLORIDE) [Concomitant]
  3. AMBIEN [Concomitant]
  4. TAMBOCOR [Concomitant]
  5. PROTONIX [Concomitant]
  6. ZYPREXA [Concomitant]
  7. TOPROL-XL [Concomitant]
  8. LEVAQUIN [Concomitant]
  9. BENTYL [Concomitant]
  10. SYNTHROID [Concomitant]
  11. DYAZIDE [Concomitant]
  12. NEURONTIN [Concomitant]
  13. NORTRIPTYLINE HYDROCHLORIDE [Concomitant]
  14. METFORMIN HCL [Concomitant]
  15. DILANTIN [Concomitant]

REACTIONS (1)
  - DIARRHOEA [None]
